FAERS Safety Report 10766787 (Version 1)
Quarter: 2015Q1

REPORT INFORMATION
  Report Type: Report from Study
  Country: US (occurrence: US)
  Receive Date: 20150205
  Receipt Date: 20150205
  Transmission Date: 20150721
  Serious: Yes (Hospitalization)
  Sender: FDA-Public Use
  Company Number: PHHO2011US17732

PATIENT
  Age: 8 Year
  Sex: Female
  Weight: 29.3 kg

DRUGS (10)
  1. RAD001O [Suspect]
     Active Substance: UNSPECIFIED INGREDIENT
     Indication: ASTROCYTOMA, LOW GRADE
     Dosage: 4 MG, QD
     Route: 048
     Dates: start: 20100219, end: 20100422
  2. DIASTAT [Concomitant]
     Active Substance: DIAZEPAM
     Indication: SEIZURE
     Dosage: 10 MG, PRN
     Route: 054
     Dates: start: 2004
  3. RAD001O [Suspect]
     Active Substance: UNSPECIFIED INGREDIENT
     Dosage: 5 MG, QD
     Route: 048
     Dates: start: 20110804, end: 20110821
  4. ZONEGRAN [Concomitant]
     Active Substance: ZONISAMIDE
     Indication: SEIZURE
     Dosage: 25 MG, QD
     Route: 048
     Dates: start: 2006
  5. RAD001O [Suspect]
     Active Substance: UNSPECIFIED INGREDIENT
     Dosage: NO TREATMENT
     Dates: start: 20110822, end: 20110824
  6. KEPPRA [Concomitant]
     Active Substance: LEVETIRACETAM
     Indication: SEIZURE
     Dosage: 800 MG, QD
     Route: 048
     Dates: start: 20091219
  7. PLACEBO [Suspect]
     Active Substance: UNSPECIFIED INGREDIENT
     Indication: ASTROCYTOMA, LOW GRADE
     Dosage: UNK
     Route: 048
     Dates: start: 20091029
  8. RAD001O [Suspect]
     Active Substance: UNSPECIFIED INGREDIENT
     Dosage: 5 MG, QD
     Route: 048
     Dates: start: 20110825
  9. RAD001O [Suspect]
     Active Substance: UNSPECIFIED INGREDIENT
     Dosage: 5 MG, QD
     Route: 048
     Dates: start: 20100423, end: 20110731
  10. RAD001O [Suspect]
     Active Substance: UNSPECIFIED INGREDIENT
     Dosage: NO TREATMENT
     Dates: start: 20110801, end: 20110802

REACTIONS (2)
  - Dehydration [Recovered/Resolved]
  - Mouth ulceration [Recovered/Resolved]

NARRATIVE: CASE EVENT DATE: 20110731
